APPROVED DRUG PRODUCT: HEMABATE
Active Ingredient: CARBOPROST TROMETHAMINE
Strength: EQ 0.25MG BASE/ML
Dosage Form/Route: INJECTABLE;INJECTION
Application: N017989 | Product #001 | TE Code: AP
Applicant: PFIZER INC
Approved: Approved Prior to Jan 1, 1982 | RLD: Yes | RS: Yes | Type: RX